FAERS Safety Report 6939591-5 (Version None)
Quarter: 2010Q3

REPORT INFORMATION
  Report Type: 
  Country: None (occurrence: None)
  Receive Date: 20100820
  Receipt Date: 20100812
  Transmission Date: 20110219
  Serious: Yes (Other)
  Sender: FDA-Public Use
  Company Number: 017121

PATIENT
  Sex: Male

DRUGS (1)
  1. VIMPAT [Suspect]
     Dosage: (100 MG BID)

REACTIONS (3)
  - CONDITION AGGRAVATED [None]
  - CONVULSION [None]
  - PRODUCT QUALITY ISSUE [None]
